FAERS Safety Report 12965738 (Version 1)
Quarter: 2016Q4

REPORT INFORMATION
  Report Type: Report from Study
  Country: US (occurrence: US)
  Receive Date: 20161122
  Receipt Date: 20161122
  Transmission Date: 20170207
  Serious: Yes (Other)
  Sender: FDA-Public Use
  Company Number: US-009507513-1611USA009829

PATIENT
  Age: 53 Year
  Sex: Female

DRUGS (3)
  1. DECADRON [Suspect]
     Active Substance: DEXAMETHASONE
     Indication: PLASMA CELL MYELOMA
  2. CYTOXAN [Concomitant]
     Active Substance: CYCLOPHOSPHAMIDE
  3. VELCADE [Concomitant]
     Active Substance: BORTEZOMIB

REACTIONS (3)
  - Transplant [Unknown]
  - Product use issue [Unknown]
  - Diabetes mellitus [Unknown]
